FAERS Safety Report 15601322 (Version 2)
Quarter: 2018Q4

REPORT INFORMATION
  Report Type: Spontaneous
  Country: US (occurrence: US)
  Receive Date: 20181109
  Receipt Date: 20181122
  Transmission Date: 20190205
  Serious: Yes (Other)
  Sender: FDA-Public Use
  Company Number: US-SERB S.A.S.-2058640

PATIENT
  Age: 3 Year
  Sex: Female
  Weight: 13.4 kg

DRUGS (5)
  1. MIDAZOLAM [Concomitant]
     Active Substance: MIDAZOLAM HYDROCHLORIDE
  2. FENTANYL. [Concomitant]
     Active Substance: FENTANYL
  3. SUCCINYLCHOLINE CHLORIDE. [Concomitant]
     Active Substance: SUCCINYLCHOLINE CHLORIDE
  4. CYANOKIT [Suspect]
     Active Substance: HYDROXOCOBALAMIN
     Indication: RESPIRATORY FUME INHALATION DISORDER
     Route: 042
  5. ETOMIDATE. [Concomitant]
     Active Substance: ETOMIDATE

REACTIONS (4)
  - Bradycardia [Recovered/Resolved]
  - Chromaturia [Recovered/Resolved]
  - Overdose [Recovered/Resolved]
  - Dermatitis exfoliative generalised [Recovered/Resolved]
